FAERS Safety Report 4432956-5 (Version None)
Quarter: 2004Q3

REPORT INFORMATION
  Report Type: 
  Country: None (occurrence: None)
  Receive Date: 20040726
  Receipt Date: 20040414
  Transmission Date: 20050211
  Serious: No
  Sender: FDA-Public Use
  Company Number: USA031254119

PATIENT
  Age: 60 Year
  Sex: Female
  Weight: 57 kg

DRUGS (2)
  1. FORTEO [Suspect]
     Indication: OSTEOPOROSIS
     Dosage: 20 UG DAY
     Dates: start: 20030505, end: 20030505
  2. CALCIUM CITRATE [Concomitant]

REACTIONS (4)
  - ASTHENIA [None]
  - CALCIUM IONISED INCREASED [None]
  - DIFFICULTY IN WALKING [None]
  - MYALGIA [None]
